FAERS Safety Report 7687187-2 (Version None)
Quarter: 2011Q3

REPORT INFORMATION
  Report Type: 
  Country: None (occurrence: None)
  Receive Date: 20110816
  Receipt Date: 20110811
  Transmission Date: 20111222
  Serious: Yes (Hospitalization)
  Sender: FDA-Public Use
  Company Number: CHPA2011US10800

PATIENT
  Age: 77 Year
  Sex: Female
  Weight: 63.492 kg

DRUGS (1)
  1. FERROUS SULFATE TAB [Suspect]
     Indication: MINERAL SUPPLEMENTATION
     Dosage: 2 DF, ONCE/SINGLE
     Route: 048
     Dates: start: 20110610

REACTIONS (2)
  - HIP FRACTURE [None]
  - OVERDOSE [None]
